FAERS Safety Report 8801291 (Version 2)
Quarter: 2013Q2

REPORT INFORMATION
  Report Type: Spontaneous
  Country: GB (occurrence: GB)
  Receive Date: 20120921
  Receipt Date: 20130626
  Transmission Date: 20140414
  Serious: Yes (Other)
  Sender: FDA-Public Use
  Company Number: GB-PFIZER INC-2012230675

PATIENT
  Age: 49 Year
  Sex: Female
  Weight: 103.41 kg

DRUGS (3)
  1. AMLODIPINE BESILATE [Suspect]
     Indication: HYPERTENSION
     Dosage: 10 MG, 1X/DAY
     Route: 048
     Dates: start: 20120806, end: 20120902
  2. METFORMIN [Concomitant]
     Dosage: UNK
  3. JANUVIA [Concomitant]
     Dosage: UNK

REACTIONS (8)
  - Dizziness [Recovering/Resolving]
  - Confusional state [Recovering/Resolving]
  - Asthenia [Recovering/Resolving]
  - Fatigue [Recovering/Resolving]
  - Decreased appetite [Recovering/Resolving]
  - Disorientation [Recovering/Resolving]
  - Flushing [Recovering/Resolving]
  - Malaise [Recovering/Resolving]
